FAERS Safety Report 8564217-7 (Version None)
Quarter: 2012Q3

REPORT INFORMATION
  Report Type: 
  Country: None (occurrence: None)
  Receive Date: 20120803
  Receipt Date: 20120726
  Transmission Date: 20120928
  Serious: Yes (Other)
  Sender: FDA-Public Use
  Company Number: US-SHIRE-ALL1-2012-03606

PATIENT
  Age: 10 Year
  Sex: Male
  Weight: 40.8 kg

DRUGS (1)
  1. ELAPRASE [Suspect]
     Indication: MUCOPOLYSACCHARIDOSIS II
     Dosage: 24 MG, 1X/WEEK
     Route: 041
     Dates: start: 20090101

REACTIONS (6)
  - URINE ODOUR ABNORMAL [None]
  - RESTLESSNESS [None]
  - PYREXIA [None]
  - LETHARGY [None]
  - CRYING [None]
  - INFUSION RELATED REACTION [None]
